FAERS Safety Report 13553793 (Version 2)
Quarter: 2017Q3

REPORT INFORMATION
  Report Type: Spontaneous
  Country: JP (occurrence: JP)
  Receive Date: 20170517
  Receipt Date: 20170802
  Transmission Date: 20171127
  Serious: Yes (Other)
  Sender: FDA-Public Use
  Company Number: PHJP2017JP015958

PATIENT
  Age: 56 Year
  Sex: Female

DRUGS (3)
  1. ZOLEDRONATE [Suspect]
     Active Substance: ZOLEDRONIC ACID
     Indication: INVASIVE DUCTAL BREAST CARCINOMA
     Dosage: UNK
     Route: 065
  2. AFINITOR [Suspect]
     Active Substance: EVEROLIMUS
     Indication: INVASIVE DUCTAL BREAST CARCINOMA
     Dosage: 10 MG, QD
     Route: 048
     Dates: start: 201703, end: 201706
  3. EXEMESTANE. [Concomitant]
     Active Substance: EXEMESTANE
     Indication: BREAST MASS
     Dosage: 25 MG, QD
     Route: 048
     Dates: start: 201703, end: 201706

REACTIONS (5)
  - Invasive ductal breast carcinoma [Unknown]
  - Blood triglycerides increased [Recovering/Resolving]
  - Malignant neoplasm progression [Unknown]
  - Diabetes mellitus [Unknown]
  - Blood cholesterol increased [Recovering/Resolving]

NARRATIVE: CASE EVENT DATE: 201705
